FAERS Safety Report 24744181 (Version 2)
Quarter: 2024Q4

REPORT INFORMATION
  Report Type: Spontaneous
  Country: ES (occurrence: ES)
  Receive Date: 20241217
  Receipt Date: 20241231
  Transmission Date: 20250115
  Serious: Yes (Hospitalization, Other)
  Sender: PFIZER
  Company Number: ES-002147023-NVSC2023ES186848

PATIENT
  Age: 58 Year
  Sex: Male
  Weight: 99 kg

DRUGS (17)
  1. BEVACIZUMAB [Suspect]
     Active Substance: BEVACIZUMAB
     Indication: Colorectal cancer metastatic
     Dosage: 495 MG, EVERY 2 WEEKS
     Route: 042
     Dates: start: 20230602, end: 20230615
  2. LEUCOVORIN [Suspect]
     Active Substance: LEUCOVORIN\LEUCOVORIN CALCIUM
     Indication: Colorectal cancer metastatic
     Dosage: 892 MG, EVERY 2 WEEKS
     Route: 042
     Dates: start: 20230602, end: 20230615
  3. OXALIPLATIN [Suspect]
     Active Substance: OXALIPLATIN
     Indication: Colorectal cancer metastatic
     Dosage: 189.55 MG, EVERY 2 WEEKS
     Route: 042
     Dates: start: 20230602, end: 20230615
  4. FLUOROURACIL [Suspect]
     Active Substance: FLUOROURACIL
     Indication: Colorectal cancer metastatic
     Dosage: 5352 MG, EVERY 2 WEEKS
     Route: 042
     Dates: start: 20230602, end: 20230615
  5. FLUOROURACIL [Suspect]
     Active Substance: FLUOROURACIL
     Dosage: 5352 MG, EVERY 2 WEEKS
     Route: 042
     Dates: start: 20230602, end: 20230615
  6. TISLELIZUMAB [Suspect]
     Active Substance: TISLELIZUMAB
     Indication: Colorectal cancer metastatic
     Dosage: 300 MG, EVERY 4 WEEKS
     Route: 042
     Dates: start: 20230602, end: 20230602
  7. ATORVASTATIN [Concomitant]
     Active Substance: ATORVASTATIN
     Indication: General physical condition
     Dosage: UNK
     Route: 065
     Dates: start: 20230629, end: 20230709
  8. METFORMIN [Concomitant]
     Active Substance: METFORMIN HYDROCHLORIDE
     Indication: Type 2 diabetes mellitus
     Dosage: UNK
     Route: 065
  9. OMEPRAZOLE [Concomitant]
     Active Substance: OMEPRAZOLE
     Indication: General physical condition
     Dosage: UNK
     Route: 065
     Dates: start: 20230629, end: 20230710
  10. AMOXICILLIN\CLAVULANATE POTASSIUM [Concomitant]
     Active Substance: AMOXICILLIN\CLAVULANATE POTASSIUM
     Indication: Cellulitis
     Dosage: UNK
     Route: 065
     Dates: start: 20230628, end: 20230710
  11. ENOXAPARIN [Concomitant]
     Active Substance: ENOXAPARIN
     Indication: General physical condition
     Dosage: UNK
     Route: 065
     Dates: start: 20230628, end: 20230708
  12. ACETAMINOPHEN [Concomitant]
     Active Substance: ACETAMINOPHEN
     Indication: General physical condition
     Dosage: UNK
     Route: 065
     Dates: start: 20230628, end: 20230710
  13. INSULIN BOVINE ZINC [Concomitant]
     Indication: General physical condition
     Dosage: UNK
     Route: 065
     Dates: start: 20230629, end: 20230709
  14. INSULIN BOVINE ZINC [Concomitant]
     Dosage: UNK
     Route: 065
     Dates: start: 20230629, end: 20230710
  15. METAMIZOLE [Concomitant]
     Active Substance: METAMIZOLE
     Indication: General physical condition
     Dosage: UNK
     Route: 065
     Dates: start: 20230629, end: 20230709
  16. METFORMIN HYDROCHLORIDE [Concomitant]
     Active Substance: METFORMIN HYDROCHLORIDE
     Indication: General physical condition
     Dosage: UNK
     Route: 065
     Dates: start: 20230629, end: 20230710
  17. METFORMIN HYDROCHLORIDE [Concomitant]
     Active Substance: METFORMIN HYDROCHLORIDE
     Indication: Type 2 diabetes mellitus

REACTIONS (2)
  - Osteomyelitis [Recovered/Resolved]
  - Off label use [Unknown]

NARRATIVE: CASE EVENT DATE: 20230602
